FAERS Safety Report 22382510 (Version 1)
Quarter: 2023Q2

REPORT INFORMATION
  Report Type: Spontaneous
  Country: US (occurrence: US)
  Receive Date: 20230530
  Receipt Date: 20230530
  Transmission Date: 20230722
  Serious: Yes (Other)
  Sender: FDA-Public Use
  Company Number: None

PATIENT
  Age: 47 Year
  Sex: Male
  Weight: 64 kg

DRUGS (1)
  1. PANCREAZE [Suspect]
     Active Substance: PANCRELIPASE AMYLASE\PANCRELIPASE LIPASE\PANCRELIPASE PROTEASE
     Indication: Pancreatic enzyme replacement therapy
     Dosage: 24,000 UNITS THRICE A DAY
     Route: 065

REACTIONS (5)
  - Fibrosing colonopathy [Unknown]
  - Treatment noncompliance [Unknown]
  - Vitamin A decreased [Unknown]
  - Vitamin D decreased [Unknown]
  - Vitamin E decreased [Unknown]
